FAERS Safety Report 10465292 (Version 2)
Quarter: 2014Q4

REPORT INFORMATION
  Report Type: Spontaneous
  Country: US (occurrence: US)
  Receive Date: 20140919
  Receipt Date: 20141009
  Transmission Date: 20150528
  Serious: No
  Sender: FDA-Public Use
  Company Number: US-009507513-1409USA008413

PATIENT
  Age: 57 Year
  Sex: Female
  Weight: 70.3 kg

DRUGS (7)
  1. LISINOPRIL. [Concomitant]
     Active Substance: LISINOPRIL
     Indication: HYPERTENSION
     Dosage: UNK, UNKNOWN
  2. CLARITIN [Suspect]
     Active Substance: LORATADINE
     Indication: EYE PRURITUS
  3. CLARITIN [Suspect]
     Active Substance: LORATADINE
     Indication: THROAT IRRITATION
  4. METOPROLOL TARTRATE. [Concomitant]
     Active Substance: METOPROLOL TARTRATE
     Indication: HYPERTENSION
     Dosage: UNK, UNKNOWN
  5. OMEPRAZOLE. [Concomitant]
     Active Substance: OMEPRAZOLE
     Indication: GASTROOESOPHAGEAL REFLUX DISEASE
     Dosage: UNK, UNKNOWN
  6. CLARITIN [Suspect]
     Active Substance: LORATADINE
     Indication: SNEEZING
     Dosage: 10 MG, QD
     Route: 048
     Dates: start: 20140924, end: 20140925
  7. CLARITIN [Suspect]
     Active Substance: LORATADINE
     Indication: LACRIMATION INCREASED

REACTIONS (1)
  - Somnolence [Unknown]
